FAERS Safety Report 5336132-3 (Version None)
Quarter: 2007Q2

REPORT INFORMATION
  Report Type: 
  Country: None (occurrence: None)
  Receive Date: 20070302
  Receipt Date: 20070105
  Transmission Date: 20071010
  Serious: No
  Sender: FDA-Public Use
  Company Number: PHEH2007US00639

PATIENT
  Age: 45 Year
  Sex: Female

DRUGS (1)
  1. ENABLEX [Suspect]
     Indication: HYPERTONIC BLADDER
     Dosage: 7/5 MG, QD, ORAL
     Route: 048
     Dates: start: 20061228

REACTIONS (1)
  - THERAPEUTIC RESPONSE UNEXPECTED [None]
